FAERS Safety Report 13561357 (Version 1)
Quarter: 2017Q2

REPORT INFORMATION
  Report Type: Spontaneous
  Country: IT (occurrence: IT)
  Receive Date: 20170518
  Receipt Date: 20170518
  Transmission Date: 20170830
  Serious: Yes (Hospitalization)
  Sender: FDA-Public Use
  Company Number: IT-MYLANLABS-2017M1029690

PATIENT

DRUGS (1)
  1. LEVOFLOXACIN. [Suspect]
     Active Substance: LEVOFLOXACIN
     Indication: DYSPNOEA
     Dosage: 1 DF TOTAL
     Dates: start: 20170422, end: 20170422

REACTIONS (2)
  - Confusional state [Unknown]
  - Clonus [Unknown]

NARRATIVE: CASE EVENT DATE: 20170422
